FAERS Safety Report 4567796-X (Version None)
Quarter: 2005Q1

REPORT INFORMATION
  Report Type: 
  Country: None (occurrence: None)
  Receive Date: 20050128
  Receipt Date: 20050112
  Transmission Date: 20050727
  Serious: Yes (Hospitalization)
  Sender: FDA-Public Use
  Company Number: 173929

PATIENT
  Age: 45 Year
  Sex: Female
  Weight: 62.1428 kg

DRUGS (14)
  1. AVONEX [Suspect]
     Indication: MULTIPLE SCLEROSIS
     Dosage: 30 UG; QW;IM
     Dates: start: 19960801, end: 19990101
  2. AVONEX [Suspect]
     Indication: MULTIPLE SCLEROSIS
     Dosage: 30 UG; QW; IM
     Dates: start: 20000101, end: 20030101
  3. AVONEX [Suspect]
     Indication: MULTIPLE SCLEROSIS
     Dosage: 30 UG; QW; IM
     Dates: start: 20030101, end: 20041101
  4. AVONEX [Suspect]
     Indication: MULTIPLE SCLEROSIS
     Dosage: 30 UG; QW; IM
     Dates: start: 20041101
  5. BACLOFEN [Concomitant]
  6. SKELAXIN [Concomitant]
  7. XANAX [Concomitant]
  8. VERAPAMIL [Concomitant]
  9. LIPITOR [Concomitant]
  10. PROZAC [Concomitant]
  11. PAXIL [Concomitant]
  12. LANOXIN [Concomitant]
  13. ACULAR [Concomitant]
  14. ATROPINE [Concomitant]

REACTIONS (18)
  - BALANCE DISORDER [None]
  - CARBOHYDRATE ANTIGEN 125 INCREASED [None]
  - CYSTITIS [None]
  - DIVERTICULITIS [None]
  - FALL [None]
  - FUNGAL SKIN INFECTION [None]
  - GARDNERELLA INFECTION [None]
  - GASTROINTESTINAL DISORDER [None]
  - LARYNGOSPASM [None]
  - MIGRAINE [None]
  - MULTIPLE SCLEROSIS [None]
  - ORAL FUNGAL INFECTION [None]
  - OVARIAN CANCER [None]
  - PAIN IN EXTREMITY [None]
  - PYREXIA [None]
  - URINARY RETENTION [None]
  - VAGINAL INFECTION [None]
  - VAGINAL MYCOSIS [None]
